FAERS Safety Report 5166293-0 (Version None)
Quarter: 2006Q4

REPORT INFORMATION
  Report Type: 
  Country: None (occurrence: None)
  Receive Date: 20061124
  Receipt Date: 20061117
  Transmission Date: 20070319
  Serious: Yes (Hospitalization)
  Sender: FDA-Public Use
  Company Number: LEUP-10008

PATIENT
  Age: 61 Year
  Sex: Male

DRUGS (1)
  1. LEUPROLIDE [Suspect]
     Indication: PROSTATE CANCER
     Dosage: 30 MG

REACTIONS (9)
  - EYELID PTOSIS [None]
  - HEADACHE [None]
  - IIIRD NERVE PARALYSIS [None]
  - INFARCTION [None]
  - MUSCULOSKELETAL STIFFNESS [None]
  - NAUSEA [None]
  - SECRETORY ADENOMA OF PITUITARY [None]
  - VISUAL FIELD DEFECT [None]
  - VOMITING [None]
